FAERS Safety Report 4335434-7 (Version None)
Quarter: 2004Q2

REPORT INFORMATION
  Report Type: 
  Country: None (occurrence: None)
  Receive Date: 20040408
  Receipt Date: 20040408
  Transmission Date: 20050107
  Serious: Yes (Life-Threatening, Hospitalization)
  Sender: FDA-Public Use
  Company Number: None

PATIENT
  Sex: Male

DRUGS (1)
  1. ENOXAPARIN SODIUM [Suspect]
     Indication: DEEP VEIN THROMBOSIS
     Dosage: 50 MG EVERY 12 H SUBCUTANEOUS
     Route: 058
     Dates: start: 20030102, end: 20040105

REACTIONS (2)
  - ANAEMIA [None]
  - HAEMORRHAGE [None]
